FAERS Safety Report 6174003-3 (Version None)
Quarter: 2009Q2

REPORT INFORMATION
  Report Type: 
  Country: None (occurrence: None)
  Receive Date: 20090430
  Receipt Date: 20081021
  Transmission Date: 20091009
  Serious: No
  Sender: FDA-Public Use
  Company Number: US-ASTRAZENECA-2006UW19989

PATIENT
  Age: 46 Year
  Sex: Male
  Weight: 97.5 kg

DRUGS (2)
  1. NEXIUM [Suspect]
     Indication: GASTROOESOPHAGEAL REFLUX DISEASE
     Route: 048
     Dates: start: 20060901
  2. NEXIUM [Suspect]
     Route: 048
     Dates: start: 20060901

REACTIONS (5)
  - ABDOMINAL PAIN UPPER [None]
  - DEPRESSION [None]
  - DRUG INTOLERANCE [None]
  - HEART RATE DECREASED [None]
  - NIGHTMARE [None]
